FAERS Safety Report 5061037-5 (Version None)
Quarter: 2006Q3

REPORT INFORMATION
  Report Type: 
  Country: None (occurrence: None)
  Receive Date: 20060720
  Receipt Date: 20060713
  Transmission Date: 20061208
  Serious: Yes (Disabling)
  Sender: FDA-Public Use
  Company Number: 219994

PATIENT
  Age: 14 Year
  Sex: Male
  Weight: 59.4 kg

DRUGS (8)
  1. OMALIZUMAB(OMALIZUMAB) PWDR + SOLVENT, INJECTION SOLN, 150MG [Suspect]
     Indication: ASTHMA
     Dosage: 300 MG, Q2W, SUBCUTANEOUS
     Route: 058
     Dates: start: 20050307, end: 20051129
  2. FORADIL [Concomitant]
  3. ASMANEX TWISTHALER [Concomitant]
  4. ATROVENT [Concomitant]
  5. SINGULAIR [Concomitant]
  6. ALLEGRA [Concomitant]
  7. NEXIUM [Concomitant]
  8. XOPENEX [Concomitant]

REACTIONS (1)
  - ASTHMA [None]
